FAERS Safety Report 18216367 (Version 1)
Quarter: 2020Q3

REPORT INFORMATION
  Report Type: Spontaneous
  Country: US (occurrence: US)
  Receive Date: 20200901
  Receipt Date: 20200901
  Transmission Date: 20201103
  Serious: No
  Sender: FDA-Public Use
  Company Number: US-ASTRAZENECA-2020SF07418

PATIENT
  Age: 51 Year
  Sex: Female

DRUGS (1)
  1. FARXIGA [Suspect]
     Active Substance: DAPAGLIFLOZIN PROPANEDIOL
     Indication: CARDIAC FAILURE
     Dosage: 10.0MG UNKNOWN
     Route: 048
     Dates: start: 202008, end: 202008

REACTIONS (2)
  - Pruritus genital [Unknown]
  - Dysuria [Unknown]

NARRATIVE: CASE EVENT DATE: 202008
